FAERS Safety Report 24962153 (Version 1)
Quarter: 2025Q1

REPORT INFORMATION
  Report Type: Spontaneous
  Country: US (occurrence: US)
  Receive Date: 20250212
  Receipt Date: 20250212
  Transmission Date: 20250409
  Serious: No
  Sender: MYLAN
  Company Number: US-MYLANLABS-2025M1010612

PATIENT
  Age: 38 Year
  Sex: Female
  Weight: 78.93 kg

DRUGS (1)
  1. LEVOTHYROXINE SODIUM [Suspect]
     Active Substance: LEVOTHYROXINE SODIUM
     Indication: Autoimmune thyroiditis
     Dosage: 1 DOSAGE FORM, AM (ONCE EVERY MORNING)
     Route: 048

REACTIONS (2)
  - Lethargy [Recovering/Resolving]
  - Trichorrhexis [Recovering/Resolving]

NARRATIVE: CASE EVENT DATE: 20241201
